FAERS Safety Report 21664023 (Version 2)
Quarter: 2022Q4

REPORT INFORMATION
  Report Type: Spontaneous
  Country: US (occurrence: US)
  Receive Date: 20221130
  Receipt Date: 20221202
  Transmission Date: 20230113
  Serious: No
  Sender: FDA-Public Use
  Company Number: US-PFIZER INC-202201339936

PATIENT
  Sex: Male

DRUGS (1)
  1. PAXLOVID [Suspect]
     Active Substance: NIRMATRELVIR\RITONAVIR
     Indication: COVID-19 treatment
     Dosage: UNK
     Dates: start: 20221128

REACTIONS (4)
  - Dysgeusia [Unknown]
  - Dry mouth [Unknown]
  - Tongue discolouration [Unknown]
  - Anosmia [Unknown]

NARRATIVE: CASE EVENT DATE: 20221101
